FAERS Safety Report 9636013 (Version 3)
Quarter: 2014Q1

REPORT INFORMATION
  Report Type: Spontaneous
  Country: US (occurrence: None)
  Receive Date: 20131017
  Receipt Date: 20140226
  Transmission Date: 20141002
  Serious: Yes (Death)
  Sender: FDA-Public Use
  Company Number: 2013AP008659

PATIENT
  Age: 47 Year
  Sex: Female

DRUGS (5)
  1. TRAMADOL HYDROCHLORIDE TABLETS [Suspect]
     Route: 048
  2. ALPRAZOLAM [Suspect]
     Route: 048
  3. CITALOPRAM [Suspect]
     Route: 048
  4. CYCLOBENZAPRINE [Suspect]
     Route: 048
  5. PROMETHAZINE [Suspect]
     Route: 048

REACTIONS (1)
  - Completed suicide [None]
